FAERS Safety Report 24749663 (Version 5)
Quarter: 2025Q4

REPORT INFORMATION
  Report Type: Report from Study
  Country: NP (occurrence: NP)
  Receive Date: 20241218
  Receipt Date: 20251121
  Transmission Date: 20260118
  Serious: Yes (Other)
  Sender: PFIZER
  Company Number: NP-PFIZER INC-PV202400066116

PATIENT
  Age: 56 Year
  Sex: Female

DRUGS (1)
  1. PALBOCICLIB [Suspect]
     Active Substance: PALBOCICLIB
     Indication: Invasive breast carcinoma
     Dosage: 125 MG, D1-D23, 1 WEEK OFF
     Route: 048
     Dates: start: 20240313

REACTIONS (15)
  - Bronchiectasis [Unknown]
  - Haematocrit decreased [Unknown]
  - Haemoglobin decreased [Unknown]
  - White blood cell count decreased [Unknown]
  - Red blood cell count decreased [Unknown]
  - Mean cell haemoglobin increased [Unknown]
  - Blood alkaline phosphatase increased [Unknown]
  - Mean cell volume increased [Unknown]
  - Hepatic steatosis [Unknown]
  - Lymphocyte percentage decreased [Unknown]
  - Emphysema [Unknown]
  - Adrenal mass [Unknown]
  - Neutrophil percentage increased [Unknown]
  - Bundle branch block left [Unknown]
  - Electrocardiogram T wave amplitude decreased [Unknown]

NARRATIVE: CASE EVENT DATE: 20250523
